FAERS Safety Report 21578641 (Version 2)
Quarter: 2023Q1

REPORT INFORMATION
  Report Type: Spontaneous
  Country: US (occurrence: US)
  Receive Date: 20221110
  Receipt Date: 20230302
  Transmission Date: 20230418
  Serious: No
  Sender: FDA-Public Use
  Company Number: US-ABBVIE-4158040

PATIENT
  Sex: Male
  Weight: 102.05 kg

DRUGS (4)
  1. RINVOQ [Suspect]
     Active Substance: UPADACITINIB
     Indication: Eczema nummular
     Dosage: 15 MILLIGRAM
     Route: 048
  2. RINVOQ [Suspect]
     Active Substance: UPADACITINIB
     Indication: Eczema nummular
     Route: 048
  3. AMLODIPINE [Concomitant]
     Active Substance: AMLODIPINE BESYLATE
     Indication: Blood pressure measurement
  4. MELOXICAM [Concomitant]
     Active Substance: MELOXICAM
     Indication: Muscle disorder

REACTIONS (4)
  - Off label use [Not Recovered/Not Resolved]
  - Faeces discoloured [Recovered/Resolved]
  - Acne [Not Recovered/Not Resolved]
  - Seborrhoea [Unknown]
